FAERS Safety Report 8126556-3 (Version None)
Quarter: 2012Q1

REPORT INFORMATION
  Report Type: 
  Country: None (occurrence: None)
  Receive Date: 20120210
  Receipt Date: 20120127
  Transmission Date: 20120608
  Serious: Yes (Hospitalization, Other)
  Sender: FDA-Public Use
  Company Number: SE-AMGEN-SWESP2011062881

PATIENT
  Age: 67 Year
  Sex: Female

DRUGS (1)
  1. ENBREL [Suspect]
     Indication: PRODUCT USED FOR UNKNOWN INDICATION
     Dosage: 50 MG, WEEKLY
     Route: 058
     Dates: start: 20080101, end: 20110301

REACTIONS (4)
  - CAROTID ARTERY THROMBOSIS [None]
  - ERYSIPELAS [None]
  - CEREBROVASCULAR ACCIDENT [None]
  - ARTHRITIS BACTERIAL [None]
